FAERS Safety Report 9049828 (Version 1)
Quarter: 2013Q1

REPORT INFORMATION
  Report Type: Spontaneous
  Country: DE (occurrence: DE)
  Receive Date: 20130206
  Receipt Date: 20130206
  Transmission Date: 20140127
  Serious: Yes (Other)
  Sender: FDA-Public Use
  Company Number: DE-AMGEN-DEUSP2013007726

PATIENT
  Age: 54 Year
  Sex: Female

DRUGS (5)
  1. ENBREL [Suspect]
     Indication: RHEUMATOID ARTHRITIS
     Dosage: 50 MG, WEEKLY
     Dates: start: 20071201
  2. PREDNISOLONE [Concomitant]
     Dosage: 5 MG, UNK
  3. MELOXICAM [Concomitant]
     Dosage: 15 MG, UNK
  4. IBUPROFEN [Concomitant]
     Dosage: 600 UNK, UNK
  5. PANTOPRAZOL [Concomitant]
     Dosage: UNK UNK, UNK

REACTIONS (1)
  - Rheumatoid arthritis [Not Recovered/Not Resolved]
